FAERS Safety Report 6575124-3 (Version None)
Quarter: 2010Q1

REPORT INFORMATION
  Report Type: 
  Country: None (occurrence: None)
  Receive Date: 20100209
  Receipt Date: 20100126
  Transmission Date: 20100710
  Serious: Yes (Other)
  Sender: FDA-Public Use
  Company Number: DE-AMGEN-US389191

PATIENT
  Age: 65 Year
  Sex: Male

DRUGS (3)
  1. ENBREL [Suspect]
     Indication: RHEUMATOID ARTHRITIS
     Route: 058
     Dates: start: 20080501, end: 20080901
  2. RITUXIMAB [Suspect]
     Dosage: 1000 MG, FREQUENCY UNKNOWN
     Route: 042
     Dates: start: 20070831, end: 20071220
  3. METHOTREXATE [Concomitant]
     Dosage: 7.5 MG, FREQUENCY UNKNOWN
     Route: 065
     Dates: start: 20070101, end: 20080101

REACTIONS (2)
  - DYSPHAGIA [None]
  - LARYNGEAL DISORDER [None]
